FAERS Safety Report 21966785 (Version 1)
Quarter: 2023Q1

REPORT INFORMATION
  Report Type: Spontaneous
  Country: US (occurrence: US)
  Receive Date: 20230208
  Receipt Date: 20230208
  Transmission Date: 20230417
  Serious: No
  Sender: FDA-Public Use
  Company Number: US-drreddys-SPO/USA/23/0159898

PATIENT
  Age: 54 Year
  Sex: Male

DRUGS (1)
  1. LENALIDOMIDE [Suspect]
     Active Substance: LENALIDOMIDE
     Indication: Plasma cell myeloma
     Dosage: TAKE 1 CAPSULE BY MOUTH EVERY DAY ON DAYS 1-14 THEN STOP FOR 14 DAYS AND REPEAT EACH MONTH
     Route: 048
     Dates: start: 20221105

REACTIONS (2)
  - Product administration interrupted [Unknown]
  - Product use issue [Unknown]
